FAERS Safety Report 7466053-1 (Version None)
Quarter: 2011Q2

REPORT INFORMATION
  Report Type: 
  Country: None (occurrence: None)
  Receive Date: 20110509
  Receipt Date: 20100608
  Transmission Date: 20111010
  Serious: Yes (Hospitalization)
  Sender: FDA-Public Use
  Company Number: US-ALEXION-A201000660

PATIENT
  Sex: Female

DRUGS (1)
  1. SOLIRIS [Suspect]
     Indication: PAROXYSMAL NOCTURNAL HAEMOGLOBINURIA
     Dosage: 900 MG, Q12D
     Route: 042

REACTIONS (5)
  - HAEMOGLOBIN DECREASED [None]
  - FATIGUE [None]
  - APLASTIC ANAEMIA [None]
  - CONDITION AGGRAVATED [None]
  - BLOOD PRODUCT TRANSFUSION DEPENDENT [None]
